FAERS Safety Report 17168780 (Version 2)
Quarter: 2019Q4

REPORT INFORMATION
  Report Type: Spontaneous
  Country: FR (occurrence: FR)
  Receive Date: 20191218
  Receipt Date: 20191220
  Transmission Date: 20200122
  Serious: Yes (Death, Other)
  Sender: FDA-Public Use
  Company Number: FR-MYLANLABS-2019M1125585

PATIENT
  Age: 63 Year
  Sex: Female

DRUGS (5)
  1. HERCEPTIN [Suspect]
     Active Substance: TRASTUZUMAB
     Indication: PRODUCT USED FOR UNKNOWN INDICATION
     Dosage: UNK
     Route: 042
     Dates: start: 20020807, end: 20030722
  2. DOCETAXEL. [Suspect]
     Active Substance: DOCETAXEL
     Dosage: 75 MG, UNK
     Route: 042
     Dates: start: 20021119, end: 20021119
  3. CARBOPLATIN. [Suspect]
     Active Substance: CARBOPLATIN
     Indication: PRODUCT USED FOR UNKNOWN INDICATION
     Dosage: UNK
     Route: 042
     Dates: start: 20020807, end: 20020807
  4. DOCETAXEL. [Suspect]
     Active Substance: DOCETAXEL
     Indication: BREAST CANCER FEMALE
     Dosage: 75 MILLIGRAM, UNK
     Route: 042
     Dates: start: 20020807, end: 20020807
  5. CARBOPLATIN. [Suspect]
     Active Substance: CARBOPLATIN
     Dosage: UNK
     Route: 042
     Dates: start: 20021119, end: 20021119

REACTIONS (10)
  - Unresponsive to stimuli [Fatal]
  - Anaemia [Fatal]
  - Fatigue [Fatal]
  - Myelodysplastic syndrome [Fatal]
  - Second primary malignancy [Fatal]
  - Sepsis [Fatal]
  - Non-Hodgkin^s lymphoma [Fatal]
  - Hypotension [Fatal]
  - Laboratory test abnormal [Fatal]
  - Pancytopenia [Fatal]

NARRATIVE: CASE EVENT DATE: 20050125
